FAERS Safety Report 4288771-9 (Version None)
Quarter: 2004Q1

REPORT INFORMATION
  Report Type: 
  Country: None (occurrence: None)
  Receive Date: 20040204
  Receipt Date: 20040123
  Transmission Date: 20041129
  Serious: Yes (Other)
  Sender: FDA-Public Use
  Company Number: HQWYE568527JAN04

PATIENT
  Age: 82 Year
  Sex: Female

DRUGS (5)
  1. SERESTA (OXAZEPAM, UNSPEC) [Suspect]
     Indication: SLEEP DISORDER
     Dosage: 15 MG 1X PER 1 DAY
     Route: 048
     Dates: end: 20031110
  2. PANTOZOL (PANTOPRAZOLE) [Concomitant]
  3. PASPERTIN (METOCLOPRAMIDE HYDROCHLORIDE) [Concomitant]
  4. DURAGESIC [Concomitant]
  5. TIATRAL (ALOXIPRIN) [Concomitant]

REACTIONS (1)
  - PANCYTOPENIA [None]
